FAERS Safety Report 25585264 (Version 1)
Quarter: 2025Q3

REPORT INFORMATION
  Report Type: Spontaneous
  Country: TR (occurrence: TR)
  Receive Date: 20250721
  Receipt Date: 20250721
  Transmission Date: 20251020
  Serious: Yes (Other)
  Sender: Unknown Manufacturer
  Company Number: TR-STRIDES ARCOLAB LIMITED-2025OS000182

PATIENT
  Age: 53 Year
  Sex: Female

DRUGS (1)
  1. AMPICILLIN AND SULBACTAM [Suspect]
     Active Substance: AMPICILLIN SODIUM\SULBACTAM SODIUM
     Indication: Antibiotic therapy
     Route: 065

REACTIONS (3)
  - Respiratory symptom [Unknown]
  - Hypersensitivity [Unknown]
  - Cutaneous symptom [Unknown]
